FAERS Safety Report 19264906 (Version 1)
Quarter: 2021Q2

REPORT INFORMATION
  Report Type: Spontaneous
  Country: US (occurrence: US)
  Receive Date: 20210517
  Receipt Date: 20210517
  Transmission Date: 20210717
  Serious: No
  Sender: FDA-Public Use
  Company Number: US-PFIZER INC-2021503760

PATIENT
  Age: 47 Year
  Sex: Female

DRUGS (1)
  1. IBRANCE [Suspect]
     Active Substance: PALBOCICLIB
     Dosage: 125 MG
     Dates: start: 20210413, end: 20210503

REACTIONS (5)
  - Insomnia [Unknown]
  - Headache [Unknown]
  - Stomatitis [Unknown]
  - Night sweats [Unknown]
  - Dyspepsia [Unknown]
